FAERS Safety Report 4400068-2 (Version None)
Quarter: 2004Q3

REPORT INFORMATION
  Report Type: 
  Country: None (occurrence: None)
  Receive Date: 20040716
  Receipt Date: 20030407
  Transmission Date: 20050211
  Serious: Yes (Hospitalization, Disabling)
  Sender: FDA-Public Use
  Company Number: US-MERCK-0304USA00832

PATIENT
  Age: 53 Year
  Sex: Female
  Weight: 69 kg

DRUGS (9)
  1. VENTOLIN [Concomitant]
     Route: 055
  2. ASPIRIN [Concomitant]
     Route: 065
  3. CELEXA [Concomitant]
     Indication: DEPRESSION
     Route: 065
     Dates: start: 20000601, end: 20030810
  4. LEXAPRO [Concomitant]
     Route: 065
     Dates: start: 20000601, end: 20030810
  5. AEROBID [Concomitant]
     Route: 065
  6. SYNTHROID [Concomitant]
     Route: 065
     Dates: start: 19681217
  7. CLARITIN [Concomitant]
     Route: 065
  8. NIACIN [Concomitant]
     Route: 065
     Dates: start: 19630611, end: 20030810
  9. VIOXX [Suspect]
     Indication: SPINAL OSTEOARTHRITIS
     Route: 048
     Dates: start: 20001101

REACTIONS (33)
  - ANAEMIA [None]
  - ANXIETY [None]
  - BASAL CELL CARCINOMA [None]
  - BENIGN VASCULAR NEOPLASM [None]
  - BURNING SENSATION [None]
  - CEREBROVASCULAR ACCIDENT [None]
  - CONVERSION DISORDER [None]
  - DIZZINESS [None]
  - EMOTIONAL DISTRESS [None]
  - GANGLION [None]
  - GENERALISED ANXIETY DISORDER [None]
  - HAEMORRHOIDS [None]
  - HALLUCINATION [None]
  - HEMIPARESIS [None]
  - HIATUS HERNIA [None]
  - HYPERTENSION [None]
  - HYPOAESTHESIA [None]
  - HYPOKALAEMIA [None]
  - HYPOREFLEXIA [None]
  - LACUNAR INFARCTION [None]
  - LIVER FUNCTION TEST ABNORMAL [None]
  - LOSS OF CONSCIOUSNESS [None]
  - MOVEMENT DISORDER [None]
  - OESOPHAGEAL SPASM [None]
  - ORTHOSTATIC HYPOTENSION [None]
  - PAIN IN EXTREMITY [None]
  - PALPITATIONS [None]
  - POST PROCEDURAL COMPLICATION [None]
  - PSYCHOSOMATIC DISEASE [None]
  - STRESS SYMPTOMS [None]
  - SUICIDAL IDEATION [None]
  - SYNCOPE [None]
  - TINNITUS [None]
